FAERS Safety Report 18115387 (Version 1)
Quarter: 2020Q3

REPORT INFORMATION
  Report Type: Spontaneous
  Country: DE (occurrence: DE)
  Receive Date: 20200805
  Receipt Date: 20200805
  Transmission Date: 20201103
  Serious: Yes (Other)
  Sender: FDA-Public Use
  Company Number: DE-BAYER-2020-152728

PATIENT
  Age: 44 Year
  Sex: Female

DRUGS (2)
  1. CIPROFLOXACIN. [Suspect]
     Active Substance: CIPROFLOXACIN
     Indication: ACNE
  2. CIPROFLOXACIN. [Suspect]
     Active Substance: CIPROFLOXACIN
     Indication: DERMATITIS
     Dosage: UNK

REACTIONS (10)
  - Stress [None]
  - Muscle atrophy [None]
  - Early retirement [None]
  - Tibia fracture [None]
  - Muscle twitching [Not Recovered/Not Resolved]
  - Tongue disorder [None]
  - Pain in extremity [Not Recovered/Not Resolved]
  - Immobile [None]
  - Paraesthesia [None]
  - Asthenia [Not Recovered/Not Resolved]

NARRATIVE: CASE EVENT DATE: 2010
